FAERS Safety Report 8100205-2 (Version None)
Quarter: 2012Q1

REPORT INFORMATION
  Report Type: 
  Country: None (occurrence: None)
  Receive Date: 20120129
  Receipt Date: 20111229
  Transmission Date: 20120608
  Serious: No
  Sender: FDA-Public Use
  Company Number: US-ABBOTT-11P-163-0850799-00

PATIENT
  Sex: Female
  Weight: 59.02 kg

DRUGS (6)
  1. HUMIRA [Suspect]
     Indication: CROHN'S DISEASE
     Dosage: LOADING DOSE ONLY
     Route: 058
     Dates: start: 20110818, end: 20110818
  2. ASACOL [Concomitant]
     Indication: CROHN'S DISEASE
     Dosage: DAILY
  3. PREDNISONE TAB [Concomitant]
     Indication: HYPERSENSITIVITY
  4. PREDNISONE TAB [Concomitant]
     Indication: CROHN'S DISEASE
  5. CORTISONE ACETATE [Concomitant]
     Indication: RASH PRURITIC
     Dates: start: 20110829
  6. LEVOTHYROXINE SODIUM [Concomitant]
     Indication: HYPOTHYROIDISM
     Dosage: DAILY

REACTIONS (7)
  - URTICARIA [None]
  - RASH PRURITIC [None]
  - RASH [None]
  - RASH VESICULAR [None]
  - INJECTION SITE DISCOLOURATION [None]
  - INJECTION SITE ERYTHEMA [None]
  - SKIN EXFOLIATION [None]
